FAERS Safety Report 6965750-1 (Version None)
Quarter: 2010Q3

REPORT INFORMATION
  Report Type: 
  Country: None (occurrence: None)
  Receive Date: 20100903
  Receipt Date: 20100830
  Transmission Date: 20110219
  Serious: Yes (Hospitalization)
  Sender: FDA-Public Use
  Company Number: DK-MERCK-1009DNK00001

PATIENT
  Sex: Female

DRUGS (10)
  1. ZOCOR [Suspect]
     Indication: HYPERCHOLESTEROLAEMIA
     Route: 065
     Dates: end: 20100726
  2. ERGOCALCIFEROL [Concomitant]
     Route: 065
  3. CYCLOSPORINE [Concomitant]
     Route: 065
  4. DILTIAZEM HYDROCHLORIDE [Concomitant]
     Route: 048
  5. ALLOPURINOL [Concomitant]
     Route: 065
  6. MYCOPHENOLATE MOFETIL [Concomitant]
     Route: 065
  7. PREDNISOLONE [Concomitant]
     Route: 065
  8. ZOPICLONE [Concomitant]
     Route: 048
  9. PANTOPRAZOLE [Concomitant]
     Route: 065
  10. METOPROLOL TARTRATE [Concomitant]
     Route: 048

REACTIONS (2)
  - RENAL FAILURE [None]
  - RHABDOMYOLYSIS [None]
